FAERS Safety Report 9335681 (Version 1)
Quarter: 2013Q2

REPORT INFORMATION
  Report Type: Report from Study
  Country: US (occurrence: US)
  Receive Date: 20130607
  Receipt Date: 20130607
  Transmission Date: 20140414
  Serious: Yes (Hospitalization)
  Sender: FDA-Public Use
  Company Number: US-ROCHE-1233866

PATIENT
  Age: 38 Year
  Sex: Female
  Weight: 90.8 kg

DRUGS (2)
  1. XOLAIR [Suspect]
     Indication: ASTHMA
     Route: 058
     Dates: start: 20130528, end: 20130531
  2. SYMBICORT [Concomitant]
     Indication: ASTHMA
     Dosage: 160/4.5MCG
     Route: 065
     Dates: start: 201301

REACTIONS (1)
  - Anaphylactic reaction [Recovered/Resolved]
